FAERS Safety Report 26102297 (Version 1)
Quarter: 2025Q4

REPORT INFORMATION
  Report Type: Spontaneous
  Country: US (occurrence: None)
  Receive Date: 20251125
  Receipt Date: 20251125
  Transmission Date: 20260117
  Serious: Yes (Congenital Anomaly)
  Sender: FDA-CTU
  Company Number: None

PATIENT
  Age: 26 Week

DRUGS (4)
  1. XELJANZ XR [Suspect]
     Active Substance: TOFACITINIB CITRATE
     Indication: Colitis ulcerative
  2. XELJANZ XR [Suspect]
     Active Substance: TOFACITINIB CITRATE
     Indication: Ankylosing spondylitis
  3. LOMOTIL PRN [Concomitant]
  4. FISH OIL [Concomitant]
     Active Substance: FISH OIL

REACTIONS (10)
  - Pulmonary aplasia [None]
  - Cardiac malposition [None]
  - Pericardial effusion [None]
  - Cardiomegaly [None]
  - Cerebral ventricle dilatation [None]
  - Cerebral disorder [None]
  - Cerebral dysgenesis [None]
  - Paternal exposure during pregnancy [None]
  - Gene mutation identification test positive [None]
  - Abortion induced [None]

NARRATIVE: CASE EVENT DATE: 20250918
